FAERS Safety Report 7539433-3 (Version None)
Quarter: 2011Q2

REPORT INFORMATION
  Report Type: 
  Country: None (occurrence: None)
  Receive Date: 20110610
  Receipt Date: 20110607
  Transmission Date: 20111010
  Serious: Yes (Hospitalization)
  Sender: FDA-Public Use
  Company Number: GB-PFIZER INC-2011124542

PATIENT
  Age: 39 Year
  Sex: Female

DRUGS (3)
  1. MISOPROSTOL [Suspect]
     Indication: ABORTION INDUCED
     Dosage: 400 UG,  5  PER DAY
     Route: 048
  2. MIFEPRISTONE (MIFEPREX) [Suspect]
     Indication: ABORTION INDUCED
     Dosage: 200 MG, 1 TOTAL
     Route: 048
  3. MISOPROSTOL [Suspect]
     Dosage: 800 UG, 1 TOTAL
     Route: 067

REACTIONS (7)
  - ABDOMINAL PAIN [None]
  - CIRCULATORY COLLAPSE [None]
  - INCORRECT DOSE ADMINISTERED [None]
  - INCORRECT ROUTE OF DRUG ADMINISTRATION [None]
  - UTERINE RUPTURE [None]
  - HYPOTENSION [None]
  - INDUCED ABORTION FAILED [None]
